FAERS Safety Report 21095144 (Version 1)
Quarter: 2022Q3

REPORT INFORMATION
  Report Type: Spontaneous
  Country: US (occurrence: None)
  Receive Date: 20220718
  Receipt Date: 20220718
  Transmission Date: 20221026
  Serious: Yes (Hospitalization)
  Sender: FDA-Public Use
  Company Number: None

PATIENT
  Age: 73 Year
  Sex: Male
  Weight: 83.01 kg

DRUGS (11)
  1. CAPECITABINE [Suspect]
     Active Substance: CAPECITABINE
     Indication: Colon cancer
     Dosage: FREQUENCY : TWICE A DAY;?
     Route: 048
     Dates: start: 202207
  2. CAPECITABINE [Suspect]
     Active Substance: CAPECITABINE
     Indication: Colon cancer
     Dosage: FREQUENCY : TWICE A DAY;?
     Route: 048
     Dates: start: 202207
  3. AMLODIPINE BESYLATE [Concomitant]
  4. FERROUS SULFATE [Concomitant]
  5. LANTUS SOLOSTAR SUBCUTANEOUS [Concomitant]
  6. LOSARTAN POTASSIUM [Concomitant]
     Active Substance: LOSARTAN POTASSIUM
  7. METOPROLOL SUCCINATE [Concomitant]
  8. MULTIVI-VITAMIN [Concomitant]
  9. ONDANSETRON [Concomitant]
     Active Substance: ONDANSETRON
  10. PRAVASTATIN [Concomitant]
     Active Substance: PRAVASTATIN
  11. PROCHLORPERAZINE [Concomitant]

REACTIONS (2)
  - Malaise [None]
  - Hospice care [None]
